FAERS Safety Report 6908571-8 (Version None)
Quarter: 2010Q3

REPORT INFORMATION
  Report Type: 
  Country: None (occurrence: None)
  Receive Date: 20100716
  Receipt Date: 20100327
  Transmission Date: 20110219
  Serious: Yes (Other)
  Sender: FDA-Public Use
  Company Number: 2010040007

PATIENT
  Age: 59 Year
  Sex: Female
  Weight: 59.9 kg

DRUGS (2)
  1. CELEBREX [Suspect]
     Indication: ARTHRITIS
     Dosage: 200 MG, 2X/DAY, ORAL
     Route: 048
     Dates: start: 20100317
  2. HYDROCODONE BITARTRATE [Concomitant]

REACTIONS (1)
  - URTICARIA [None]
